FAERS Safety Report 15852249 (Version 1)
Quarter: 2019Q1

REPORT INFORMATION
  Report Type: Spontaneous
  Country: US (occurrence: US)
  Receive Date: 20190122
  Receipt Date: 20190122
  Transmission Date: 20190417
  Serious: Yes (Other)
  Sender: FDA-Public Use
  Company Number: US-ABBVIE-19S-163-2633434-00

PATIENT
  Sex: Female

DRUGS (5)
  1. PROTONIX [Concomitant]
     Active Substance: PANTOPRAZOLE SODIUM
     Indication: GASTROOESOPHAGEAL REFLUX DISEASE
  2. SYNTHROID [Suspect]
     Active Substance: LEVOTHYROXINE SODIUM
     Indication: HYPOTHYROIDISM
     Dosage: 1 1/2 TABLETS MONDAY THRU SATURDAY AND 2 TABLETS ON SUNDAY
     Route: 048
     Dates: start: 2013
  3. AUGMENTIN [Suspect]
     Active Substance: AMOXICILLIN\CLAVULANATE POTASSIUM
     Indication: SINUSITIS
     Route: 065
     Dates: start: 201811, end: 201811
  4. MOTRIN [Suspect]
     Active Substance: IBUPROFEN
     Indication: PAIN
     Route: 065
     Dates: start: 201811
  5. VITAMIN D [Concomitant]
     Active Substance: CHOLECALCIFEROL
     Indication: OSTEOPOROSIS

REACTIONS (13)
  - Loss of consciousness [Not Recovered/Not Resolved]
  - Head injury [Recovered/Resolved]
  - Depression [Recovered/Resolved]
  - Upper limb fracture [Recovering/Resolving]
  - Fall [Not Recovered/Not Resolved]
  - Wrist fracture [Recovering/Resolving]
  - Sinusitis [Recovered/Resolved]
  - Weight increased [Recovering/Resolving]
  - Joint dislocation [Recovering/Resolving]
  - Fatigue [Recovering/Resolving]
  - Ligament rupture [Recovering/Resolving]
  - Mood swings [Recovered/Resolved]
  - Palpitations [Recovering/Resolving]

NARRATIVE: CASE EVENT DATE: 201811
